FAERS Safety Report 8879638 (Version 2)
Quarter: 2013Q1

REPORT INFORMATION
  Report Type: Spontaneous
  Country: US (occurrence: US)
  Receive Date: 20121031
  Receipt Date: 20130205
  Transmission Date: 20140127
  Serious: Yes (Other)
  Sender: FDA-Public Use
  Company Number: US-GLAXOSMITHKLINE-A0998580A

PATIENT
  Age: 60 Year
  Sex: Female

DRUGS (2)
  1. PAROXETINE [Suspect]
     Indication: ANXIETY
     Dosage: 12.5MG SINGLE DOSE
     Route: 048
     Dates: start: 20080806, end: 20080806
  2. NO CONCURRENT MEDICATION [Concomitant]

REACTIONS (6)
  - Deafness [Not Recovered/Not Resolved]
  - Tinnitus [Unknown]
  - Hearing aid user [Unknown]
  - Disorientation [Unknown]
  - Feeling abnormal [Unknown]
  - Crying [Unknown]
